FAERS Safety Report 20888217 (Version 2)
Quarter: 2022Q2

REPORT INFORMATION
  Report Type: Spontaneous
  Country: US (occurrence: US)
  Receive Date: 20220529
  Receipt Date: 20220617
  Transmission Date: 20220720
  Serious: Yes (Hospitalization, Congenital Anomaly, Other)
  Sender: FDA-Public Use
  Company Number: US-APOTEX-2022AP008398

PATIENT
  Age: 40 Year
  Sex: Male

DRUGS (4)
  1. SOTALOL [Suspect]
     Active Substance: SOTALOL
     Indication: Arrhythmia supraventricular
     Dosage: UNK
     Route: 065
  2. SOTALOL [Suspect]
     Active Substance: SOTALOL
     Indication: Supraventricular tachycardia
  3. ADENOSINE [Concomitant]
     Active Substance: ADENOSINE
     Indication: Supraventricular tachycardia
     Dosage: UNK
     Route: 065
  4. ADENOSINE [Concomitant]
     Active Substance: ADENOSINE
     Indication: Tachycardia induced cardiomyopathy

REACTIONS (3)
  - Wolff-Parkinson-White syndrome congenital [Recovered/Resolved]
  - Unmasking of previously unidentified disease [Recovered/Resolved]
  - Supraventricular tachycardia [Recovered/Resolved]
